FAERS Safety Report 8404292-3 (Version None)
Quarter: 2012Q2

REPORT INFORMATION
  Report Type: 
  Country: None (occurrence: None)
  Receive Date: 20120601
  Receipt Date: 20110511
  Transmission Date: 20120825
  Serious: Yes (Disabling)
  Sender: FDA-Public Use
  Company Number: CA-TEVA-283072USA

PATIENT
  Age: 64 Year
  Sex: Female
  Weight: 83.99 kg

DRUGS (28)
  1. BACTRIM [Suspect]
     Dosage: 2 DOSAGE FORMS;
  2. RAMIPRIL [Concomitant]
  3. ACETYLSALICYLIC ACID SRT [Concomitant]
  4. INSULIN HUMAN [Concomitant]
     Route: 058
  5. IDARAC [Concomitant]
  6. ACETAMINOPHEN [Concomitant]
  7. ACETYLSALICYLIC ACID SRT [Concomitant]
  8. BI PREDONIUM [Concomitant]
  9. VALSARTAN [Concomitant]
  10. HYZAAR [Concomitant]
  11. MELOXICAM [Concomitant]
  12. FUROSEMIDE [Concomitant]
  13. ACETAMINOPHEN [Concomitant]
  14. CHLORTHALIDONE [Concomitant]
  15. INSULIN [Concomitant]
  16. HOMATROPINE HYDROBROMIDE [Concomitant]
     Route: 047
  17. IBUPROFEN [Concomitant]
  18. IRBESARTAN [Concomitant]
  19. FUROSEMIDE [Concomitant]
  20. METFORMIN HYDROCHLORIDE [Concomitant]
  21. ACETAMINOPHEN [Concomitant]
  22. HUMULIN R [Concomitant]
  23. INSULIN GLARGINE [Concomitant]
     Route: 058
  24. GLYBURIDE [Concomitant]
  25. HYDROCHLOROTHIAZIDE [Concomitant]
  26. NABUMETONE [Concomitant]
  27. KETOROLAC TROMETHAMINE [Concomitant]
  28. MOXIFLOXACIN HYDROCHLORIDE [Concomitant]
     Route: 047

REACTIONS (1)
  - VISION BLURRED [None]
